FAERS Safety Report 5291271-0 (Version None)
Quarter: 2007Q2

REPORT INFORMATION
  Report Type: 
  Country: None (occurrence: None)
  Receive Date: 20070409
  Receipt Date: 20070329
  Transmission Date: 20071010
  Serious: Yes (Hospitalization, Other)
  Sender: FDA-Public Use
  Company Number: AU-PFIZER INC-2006078152

PATIENT
  Sex: Male
  Weight: 73 kg

DRUGS (8)
  1. ATORVASTATIN CALCIUM [Suspect]
     Indication: CORONARY ARTERY DISEASE
     Dosage: DAILY DOSE:20MG
     Route: 048
     Dates: start: 20050926, end: 20060704
  2. PERINDOPRIL ERBUMINE [Concomitant]
     Route: 048
  3. ASPIRIN [Concomitant]
     Route: 048
     Dates: start: 20011128
  4. GLICLAZIDE [Concomitant]
     Route: 048
     Dates: start: 20050401
  5. METFORMIN HCL [Concomitant]
     Route: 048
     Dates: start: 20051221
  6. AMOXICILLIN [Concomitant]
     Route: 048
     Dates: start: 20060501, end: 20060601
  7. PENICILLIN G [Concomitant]
     Route: 048
     Dates: start: 20060607, end: 20060617
  8. DOXYCYCLINE [Concomitant]
     Route: 048
     Dates: start: 20060611, end: 20060617

REACTIONS (4)
  - ALVEOLITIS FIBROSING [None]
  - CHRONIC OBSTRUCTIVE PULMONARY DISEASE [None]
  - HYPOKALAEMIA [None]
  - PULMONARY HYPERTENSION [None]
